FAERS Safety Report 20519847 (Version 1)
Quarter: 2022Q1

REPORT INFORMATION
  Report Type: Spontaneous
  Country: US (occurrence: US)
  Receive Date: 20220225
  Receipt Date: 20220225
  Transmission Date: 20220423
  Serious: Yes (Hospitalization, Other)
  Sender: FDA-Public Use
  Company Number: US-MLMSERVICE-20220216-3372967-1

PATIENT
  Age: 38 Year
  Sex: Female

DRUGS (3)
  1. CLONAZEPAM [Suspect]
     Active Substance: CLONAZEPAM
     Indication: Product used for unknown indication
     Dosage: 5-10 MG
     Route: 048
  2. GABAPENTIN [Suspect]
     Active Substance: GABAPENTIN
     Indication: Product used for unknown indication
     Dosage: UP TO 2400 MG TWICE DAILY
     Route: 048
  3. FENTANYL [Suspect]
     Active Substance: FENTANYL
     Indication: Product used for unknown indication

REACTIONS (4)
  - Prescription drug used without a prescription [Unknown]
  - Drug withdrawal syndrome [Unknown]
  - Drug use disorder [Unknown]
  - Drug abuse [Unknown]
